FAERS Safety Report 21634046 (Version 1)
Quarter: 2022Q4

REPORT INFORMATION
  Report Type: Spontaneous
  Country: AU (occurrence: AU)
  Receive Date: 20221123
  Receipt Date: 20221123
  Transmission Date: 20230113
  Serious: Yes (Death, Life-Threatening)
  Sender: FDA-Public Use
  Company Number: AU-PFIZER INC-11105

PATIENT
  Age: 9 Year
  Sex: Female

DRUGS (16)
  1. CYTARABINE [Suspect]
     Active Substance: CYTARABINE
     Dosage: 230 MG, DAILY
     Route: 042
     Dates: start: 20040409, end: 20040412
  2. DAUNORUBICIN HYDROCHLORIDE [Suspect]
     Active Substance: DAUNORUBICIN HYDROCHLORIDE
     Dosage: 60 MG, DAILY
     Route: 042
     Dates: start: 20040409
  3. METHOTREXATE SODIUM [Suspect]
     Active Substance: METHOTREXATE SODIUM
     Dosage: 12 MG, FREQ: ONCE
     Route: 051
     Dates: start: 20040406
  4. TOBRAMYCIN SULFATE [Suspect]
     Active Substance: TOBRAMYCIN SULFATE
     Dosage: 210 MG, DAILY
     Route: 051
     Dates: start: 20040406, end: 20040410
  5. VANCOMYCIN HYDROCHLORIDE [Suspect]
     Active Substance: VANCOMYCIN HYDROCHLORIDE
     Indication: Agranulocytosis
     Dosage: 2 G, SINGLE (ONCE)
     Route: 051
     Dates: start: 20040410
  6. TARGOCID [Suspect]
     Active Substance: TEICOPLANIN
     Indication: Agranulocytosis
     Dosage: 350 MG, DAILY
     Route: 042
     Dates: start: 20040406, end: 20040410
  7. VESANOID [Suspect]
     Active Substance: TRETINOIN
     Dosage: 50 MG, DAILY
     Route: 048
     Dates: start: 20040407
  8. ROCEPHIN [Suspect]
     Active Substance: CEFTRIAXONE SODIUM
     Indication: Agranulocytosis
     Dosage: 2 G, DAILY
     Route: 051
     Dates: start: 20040406, end: 20040410
  9. MAXOLON [Concomitant]
     Active Substance: METOCLOPRAMIDE HYDROCHLORIDE
     Dosage: UNK
     Route: 065
  10. PHENERGAN [Concomitant]
     Active Substance: PROMETHAZINE HYDROCHLORIDE
     Dosage: UNK
     Route: 065
  11. OMEPRAZOLE [Concomitant]
     Active Substance: OMEPRAZOLE
     Dosage: UNK
     Route: 065
  12. ALLOPURINOL [Concomitant]
     Active Substance: ALLOPURINOL
     Dosage: UNK
     Route: 065
  13. FLUOXETINE [Concomitant]
     Active Substance: FLUOXETINE HYDROCHLORIDE
     Dosage: UNK
     Route: 065
  14. MEROPENEM [Concomitant]
     Active Substance: MEROPENEM
     Dosage: UNK
     Route: 065
  15. ONDANSETRON [Concomitant]
     Active Substance: ONDANSETRON
     Dosage: UNK
     Route: 065
  16. ZOFRAN [Concomitant]
     Active Substance: ONDANSETRON HYDROCHLORIDE
     Dosage: UNK

REACTIONS (4)
  - Disseminated intravascular coagulation [Fatal]
  - Multiple organ dysfunction syndrome [Fatal]
  - Pulmonary oedema [Fatal]
  - Respiratory distress [Fatal]

NARRATIVE: CASE EVENT DATE: 20040412
